FAERS Safety Report 9787739 (Version 1)
Quarter: 2013Q4

REPORT INFORMATION
  Report Type: Spontaneous
  Country: US (occurrence: None)
  Receive Date: 20131227
  Receipt Date: 20131227
  Transmission Date: 20140711
  Serious: Yes (Death)
  Sender: FDA-Public Use
  Company Number: None

PATIENT
  Age: 59 Year
  Sex: Male
  Weight: 112.95 kg

DRUGS (3)
  1. PRAVACHOL [Suspect]
     Indication: BLOOD CHOLESTEROL INCREASED
     Dosage: 1 TAB AT BEDETIME
     Route: 048
     Dates: start: 20110903, end: 20111005
  2. MULTIVITAMINS [Concomitant]
  3. NIACIN [Concomitant]

REACTIONS (2)
  - Fatigue [None]
  - Sudden cardiac death [None]
